FAERS Safety Report 9882394 (Version 1)
Quarter: 2014Q1

REPORT INFORMATION
  Report Type: Report from Study
  Country: US (occurrence: US)
  Receive Date: 20140207
  Receipt Date: 20140207
  Transmission Date: 20141002
  Serious: No
  Sender: FDA-Public Use
  Company Number: US-009507513-1402USA001076

PATIENT
  Age: 35 Year
  Sex: Male
  Weight: 70 kg

DRUGS (2)
  1. COZAAR [Suspect]
     Dosage: DAILY DOSE-100MG/DAY
     Route: 048
     Dates: start: 19970212
  2. INSULIN [Concomitant]
     Indication: DIABETES MELLITUS
     Dosage: 344
     Route: 058

REACTIONS (1)
  - Abdominal pain upper [Recovered/Resolved]
